FAERS Safety Report 6528519-8 (Version None)
Quarter: 2009Q4

REPORT INFORMATION
  Report Type: 
  Country: None (occurrence: None)
  Receive Date: 20091230
  Receipt Date: 20091214
  Transmission Date: 20100525
  Serious: Yes (Other)
  Sender: FDA-Public Use
  Company Number: 460884

PATIENT
  Age: 69 Year
  Sex: Female

DRUGS (2)
  1. (PACLITAXEL) [Suspect]
     Dosage: 150 MG, INTRAVENOUS
     Route: 042
     Dates: start: 20091002
  2. AVASTIN [Concomitant]

REACTIONS (1)
  - MYOCARDIAL ISCHAEMIA [None]
